FAERS Safety Report 7637980-7 (Version None)
Quarter: 2011Q3

REPORT INFORMATION
  Report Type: 
  Country: None (occurrence: None)
  Receive Date: 20110720
  Receipt Date: 20110614
  Transmission Date: 20111222
  Serious: Yes (Hospitalization)
  Sender: FDA-Public Use
  Company Number: 2011070082

PATIENT
  Age: 24 Year
  Sex: Female

DRUGS (1)
  1. MESALAMINE [Suspect]
     Indication: COLITIS ULCERATIVE
     Dosage: ORAL AND TOPICAL
     Route: 048

REACTIONS (7)
  - HYPOKALAEMIA [None]
  - ACUTE FEBRILE NEUTROPHILIC DERMATOSIS [None]
  - MALAISE [None]
  - HEART RATE INCREASED [None]
  - SKIN HYPERPIGMENTATION [None]
  - COUGH [None]
  - HYPONATRAEMIA [None]
